FAERS Safety Report 15932337 (Version 3)
Quarter: 2021Q2

REPORT INFORMATION
  Report Type: Spontaneous
  Country: US (occurrence: US)
  Receive Date: 20190207
  Receipt Date: 20210517
  Transmission Date: 20210716
  Serious: Yes (Other)
  Sender: FDA-Public Use
  Company Number: US-TORRENT-00007604

PATIENT
  Age: 31 Year
  Sex: Female

DRUGS (10)
  1. AMITRIPTYLINE [Suspect]
     Active Substance: AMITRIPTYLINE
     Indication: NEURALGIA
     Dosage: EVERY EVENING
     Route: 048
     Dates: start: 20160520
  2. DULOXETINE. [Interacting]
     Active Substance: DULOXETINE
     Indication: NEURALGIA
     Dosage: EVERY MORNING FOR ONE WEEK
     Route: 048
  3. NYSTATIN. [Concomitant]
     Active Substance: NYSTATIN
     Indication: RASH
     Dosage: UP TO 3 TIMES A DAY AS  NEEDED
     Route: 061
  4. TIZANIDINE HYDROCHLORIDE. [Concomitant]
     Active Substance: TIZANIDINE HYDROCHLORIDE
     Indication: PRODUCT USED FOR UNKNOWN INDICATION
     Route: 048
  5. DOCUSATE [Concomitant]
     Active Substance: DOCUSATE
     Indication: PRODUCT USED FOR UNKNOWN INDICATION
     Dosage: MINI ENEMA
     Route: 054
  6. DIAZEPAM. [Concomitant]
     Active Substance: DIAZEPAM
     Indication: PRODUCT USED FOR UNKNOWN INDICATION
     Route: 048
  7. HYDRALAZINE [Concomitant]
     Active Substance: HYDRALAZINE HYDROCHLORIDE
     Indication: HYPERTENSION
     Dosage: UNKNOWN
     Route: 048
  8. LEVOFLOXACIN. [Concomitant]
     Active Substance: LEVOFLOXACIN
     Indication: URINARY TRACT INFECTION
     Dosage: 5 DAYS THERAPY
  9. GLATIRAMER ACETATE. [Concomitant]
     Active Substance: GLATIRAMER ACETATE
     Indication: PRODUCT USED FOR UNKNOWN INDICATION
     Dosage: 3 TIMES PER WEEK
     Route: 058
  10. PARACETAMOL [Concomitant]
     Active Substance: ACETAMINOPHEN
     Indication: PAIN
     Dosage: AS NEEDED
     Route: 048

REACTIONS (2)
  - Autonomic dysreflexia [Recovered/Resolved]
  - Drug interaction [Unknown]
